FAERS Safety Report 24408014 (Version 1)
Quarter: 2024Q4

REPORT INFORMATION
  Report Type: Spontaneous
  Country: US (occurrence: US)
  Receive Date: 20241007
  Receipt Date: 20241007
  Transmission Date: 20250114
  Serious: Yes (Other)
  Sender: RECKITT BENCKISER
  Company Number: US-INDIVIOR EUROPE LIMITED-INDV-142702-2024

PATIENT
  Age: 54 Year
  Sex: Male

DRUGS (1)
  1. SUBOXONE [Suspect]
     Active Substance: BUPRENORPHINE HYDROCHLORIDE\NALOXONE HYDROCHLORIDE
     Indication: Drug dependence
     Dosage: 8 MILLIGRAM, BID
     Route: 065
     Dates: start: 2020

REACTIONS (10)
  - COVID-19 [Unknown]
  - Diabetes mellitus [Not Recovered/Not Resolved]
  - Dry mouth [Not Recovered/Not Resolved]
  - Weight decreased [Not Recovered/Not Resolved]
  - Tooth loss [Recovered/Resolved]
  - Teeth brittle [Unknown]
  - Dental caries [Not Recovered/Not Resolved]
  - Tooth erosion [Not Recovered/Not Resolved]
  - Toothache [Unknown]
  - Inappropriate schedule of product administration [Unknown]

NARRATIVE: CASE EVENT DATE: 20220101
